FAERS Safety Report 19461410 (Version 1)
Quarter: 2021Q2

REPORT INFORMATION
  Report Type: Report from Study
  Country: US (occurrence: US)
  Receive Date: 20210625
  Receipt Date: 20210625
  Transmission Date: 20210717
  Serious: Yes (Other)
  Sender: FDA-Public Use
  Company Number: US-ASTELLAS-2021US019504

PATIENT
  Sex: Male

DRUGS (1)
  1. ENZALUTAMIDE [Suspect]
     Active Substance: ENZALUTAMIDE
     Indication: NEOPLASM MALIGNANT
     Dosage: 160 MG, ONCE DAILY (40 MG, 4 CAPSULES IN THE MORNING)
     Route: 048
     Dates: start: 20210408, end: 20210509

REACTIONS (4)
  - Product size issue [Unknown]
  - Choking [Unknown]
  - Vomiting [Unknown]
  - Product use complaint [Unknown]
